FAERS Safety Report 4335834-5 (Version None)
Quarter: 2004Q2

REPORT INFORMATION
  Report Type: 
  Country: None (occurrence: None)
  Receive Date: 20040409
  Receipt Date: 20040405
  Transmission Date: 20050107
  Serious: Yes (Death, Other)
  Sender: FDA-Public Use
  Company Number: PHEH2004US03896

PATIENT
  Sex: Male

DRUGS (2)
  1. MELLARIL [Suspect]
     Indication: SCHIZOPHRENIA
     Dosage: UNK,UNK
  2. THORAZINE [Suspect]
     Dosage: UNL,UNK

REACTIONS (3)
  - CORONARY ARTERY DISEASE [None]
  - DEPRESSION [None]
  - MYOCARDIAL INFARCTION [None]
